FAERS Safety Report 13905421 (Version 1)
Quarter: 2017Q3

REPORT INFORMATION
  Report Type: Spontaneous
  Country: US (occurrence: US)
  Receive Date: 20170825
  Receipt Date: 20170825
  Transmission Date: 20171127
  Serious: No
  Sender: FDA-Public Use
  Company Number: US-TEVA-759355ACC

PATIENT
  Sex: Female

DRUGS (1)
  1. ALENDRONATE SODIUM. [Suspect]
     Active Substance: ALENDRONATE SODIUM

REACTIONS (6)
  - Dizziness [Unknown]
  - Abdominal pain [Unknown]
  - Flatulence [Unknown]
  - Arthralgia [Unknown]
  - Abdominal distension [Unknown]
  - Dyspepsia [Unknown]
